FAERS Safety Report 8251970-5 (Version None)
Quarter: 2012Q2

REPORT INFORMATION
  Report Type: 
  Country: None (occurrence: None)
  Receive Date: 20120402
  Receipt Date: 20120326
  Transmission Date: 20120825
  Serious: Yes (Other)
  Sender: FDA-Public Use
  Company Number: PHHY2012JO026702

PATIENT
  Age: 2 Year
  Sex: Male

DRUGS (2)
  1. CEFTRIAXONE [Suspect]
     Indication: MENINGITIS
     Dosage: 100 MG/KG, QD
  2. VANCOMYCIN [Concomitant]
     Indication: MENINGITIS
     Dosage: 65 MG/KG, QD

REACTIONS (3)
  - TENDERNESS [None]
  - SUPRAPUBIC PAIN [None]
  - URINARY RETENTION [None]
